FAERS Safety Report 26196565 (Version 1)
Quarter: 2025Q4

REPORT INFORMATION
  Report Type: Spontaneous
  Country: US (occurrence: US)
  Receive Date: 20251224
  Receipt Date: 20251224
  Transmission Date: 20260117
  Serious: Yes (Other)
  Sender: AMPHASTAR
  Company Number: US-Amphastar Pharmaceuticals, Inc.-2190919

PATIENT
  Age: 43 Year
  Sex: Male
  Weight: 113.64 kg

DRUGS (1)
  1. ENOXAPARIN SODIUM [Suspect]
     Active Substance: ENOXAPARIN SODIUM
     Indication: Thrombosis

REACTIONS (4)
  - Injury associated with device [Unknown]
  - Injection site pruritus [Not Recovered/Not Resolved]
  - Injection site haematoma [Not Recovered/Not Resolved]
  - Haemorrhage [Unknown]
